FAERS Safety Report 24159914 (Version 2)
Quarter: 2024Q4

REPORT INFORMATION
  Report Type: Spontaneous
  Country: ES (occurrence: ES)
  Receive Date: 20240731
  Receipt Date: 20241001
  Transmission Date: 20250115
  Serious: Yes (Hospitalization, Other)
  Sender: AMGEN
  Company Number: ES-UCBSA-2024037811

PATIENT
  Age: 81 Year
  Sex: Female

DRUGS (3)
  1. EVENITY [Suspect]
     Active Substance: ROMOSOZUMAB-AQQG
     Indication: Osteoporosis
     Dosage: 210 MILLIGRAM, TOTAL
     Route: 058
     Dates: start: 20230308, end: 20230308
  2. CALCIFEDIOL [Concomitant]
     Active Substance: CALCIFEDIOL
     Indication: Vitamin D deficiency
     Dosage: 0.266 MILLIGRAM, EV 15 DAYS
     Route: 048
  3. Ameride [Concomitant]
     Indication: Hypertension
     Dosage: UNK, ONCE DAILY (QD)
     Route: 048

REACTIONS (4)
  - Cardiac failure congestive [Recovered/Resolved with Sequelae]
  - Mitral valve incompetence [Recovered/Resolved]
  - Tricuspid valve incompetence [Unknown]
  - Dilatation atrial [Unknown]

NARRATIVE: CASE EVENT DATE: 20230316
